FAERS Safety Report 25892267 (Version 1)
Quarter: 2025Q4

REPORT INFORMATION
  Report Type: Spontaneous
  Country: EU (occurrence: EU)
  Receive Date: 20251007
  Receipt Date: 20251007
  Transmission Date: 20260117
  Serious: Yes (Other)
  Sender: VERTEX
  Company Number: None

PATIENT
  Age: 11 Year
  Sex: Female
  Weight: 44 kg

DRUGS (6)
  1. ELEXACAFTOR\IVACAFTOR\TEZACAFTOR [Suspect]
     Active Substance: ELEXACAFTOR\IVACAFTOR\TEZACAFTOR
     Indication: Cystic fibrosis
     Dosage: 2 TABS (75 MG IVA/ 50  MG TEZA/ 100 MG ELEXA)
     Route: 048
     Dates: start: 20220603
  2. KALYDECO [Suspect]
     Active Substance: IVACAFTOR
     Indication: Cystic fibrosis
     Dosage: 1 TAB A DAY
     Route: 048
     Dates: start: 20220603
  3. CREON [Concomitant]
     Active Substance: PANCRELIPASE AMYLASE\PANCRELIPASE LIPASE\PANCRELIPASE PROTEASE
     Indication: Pancreatic failure
     Dosage: 25,000 U GASTRO-RESISTANT GRANULES IN CAPSULE
     Route: 048
  4. POLYETHYLENE GLYCOL 4000 [Concomitant]
     Active Substance: POLYETHYLENE GLYCOL 4000
     Indication: Constipation
     Dosage: POWDER FOR ORAL SOLUTION IN SACHET DOSE
     Route: 048
  5. PULMOZYME [Concomitant]
     Active Substance: DORNASE ALFA
     Indication: Cystic fibrosis
     Dosage: 2,500 U/2.5 ML, NEBULIZER
  6. URSODIOL [Concomitant]
     Active Substance: URSODIOL
     Indication: Pancreatic failure
     Route: 048

REACTIONS (1)
  - Chalazion [Recovered/Resolved]

NARRATIVE: CASE EVENT DATE: 20221229
